FAERS Safety Report 20795044 (Version 4)
Quarter: 2022Q2

REPORT INFORMATION
  Report Type: Spontaneous
  Country: US (occurrence: US)
  Receive Date: 20220506
  Receipt Date: 20220602
  Transmission Date: 20220721
  Serious: Yes (Other)
  Sender: FDA-Public Use
  Company Number: US-PFIZER INC-2019541337

PATIENT
  Age: 90 Year
  Sex: Female

DRUGS (30)
  1. PREMARIN [Suspect]
     Active Substance: ESTROGENS, CONJUGATED
     Indication: Pollakiuria
     Dosage: 0.625 MG, UNK
     Dates: start: 1998
  2. PREMARIN [Suspect]
     Active Substance: ESTROGENS, CONJUGATED
     Indication: Polyuria
     Dosage: 30 MG, 1X/DAY
  3. PREMARIN [Suspect]
     Active Substance: ESTROGENS, CONJUGATED
     Dosage: 1 G, 3X/WK VAGINALLY
     Route: 067
  4. PREMARIN [Suspect]
     Active Substance: ESTROGENS, CONJUGATED
     Dosage: 1 G, 2 TO 3X/WEEK VAGINALLY
     Route: 067
  5. PREMARIN [Suspect]
     Active Substance: ESTROGENS, CONJUGATED
     Dosage: 1.5 G (1.5 GRAMS 3 X 1WK)
     Route: 067
  6. IBANDRONATE SODIUM [Concomitant]
     Active Substance: IBANDRONATE SODIUM
     Dosage: 150 MG, MONTHLY
  7. AMLODIPINE [Concomitant]
     Active Substance: AMLODIPINE BESYLATE
     Indication: Hypertension
     Dosage: 2.5 MG, 1X/DAY
     Dates: start: 20190124
  8. LOSARTAN POTASSIUM [Concomitant]
     Active Substance: LOSARTAN POTASSIUM
     Indication: Hypertension
     Dosage: 100 MG, 1X/DAY
     Dates: start: 20150430
  9. FLECAINIDE ACETATE [Concomitant]
     Active Substance: FLECAINIDE ACETATE
     Indication: Tachycardia
     Dosage: 100 MG, 2X/DAY
     Dates: start: 20040419
  10. ELIQUIS [Concomitant]
     Active Substance: APIXABAN
     Indication: Atrial fibrillation
     Dosage: 5 MG, 1X/DAY
  11. ELIQUIS [Concomitant]
     Active Substance: APIXABAN
     Dosage: 2.5 MG, 1X/DAY(AM)
  12. ELIQUIS [Concomitant]
     Active Substance: APIXABAN
     Dosage: 2.5 MG, 2X/DAY (2.5 AM AND 2.5 PM)
     Dates: start: 201909
  13. VALIUM [Concomitant]
     Active Substance: DIAZEPAM
     Indication: Sleep disorder
     Dosage: 5 MG, AS NEEDED
  14. VALIUM [Concomitant]
     Active Substance: DIAZEPAM
     Indication: Anxiety
  15. VALIUM [Concomitant]
     Active Substance: DIAZEPAM
     Indication: Tension
  16. ASCORBIC ACID\CRANBERRY [Concomitant]
     Active Substance: ASCORBIC ACID\CRANBERRY
     Indication: Bladder disorder
     Dosage: UNK, 1X/DAY
  17. ALAVERT ALLERGY [Concomitant]
     Active Substance: LORATADINE
     Dosage: UNK, MONTHLY (TAKE NIGHT BEFORE TAKING RX IBANDRONATE FOR OSTEO)
  18. CHOLECALCIFEROL [Concomitant]
     Active Substance: CHOLECALCIFEROL
     Dosage: 2000 MG, DAILY
  19. GELUSIL-LAC [ALUMINIUM HYDROXIDE GEL;MAGNESIUM TRISILICATE] [Concomitant]
     Indication: Antacid therapy
     Dosage: UNK, AS NEEDED (2-4 TABS)
  20. OCUVITE LUTEIN [ASCORBIC ACID;CUPRIC OXIDE;TOCOPHERYL ACETATE;XANTOFYL [Concomitant]
     Indication: Supplementation therapy
     Dosage: UNK, 1X/DAY
  21. COSAMIN DS [CHONDROITIN SULFATE SODIUM;GLUCOSAMINE HYDROCHLORIDE;MANGA [Concomitant]
     Indication: Arthralgia
     Dosage: 1500 MG, DAILY
     Dates: start: 1998
  22. COSAMIN DS [CHONDROITIN SULFATE SODIUM;GLUCOSAMINE HYDROCHLORIDE;MANGA [Concomitant]
     Indication: Arthropathy
  23. L-LYSINE [LYSINE HYDROCHLORIDE] [Concomitant]
     Indication: Oral disorder
     Dosage: 1000 MG, UNK
  24. L-LYSINE [LYSINE HYDROCHLORIDE] [Concomitant]
     Indication: Lip disorder
  25. DILTIAZEM [Concomitant]
     Active Substance: DILTIAZEM
     Dosage: UNK
  26. VITAMIN B COMPLEX [Concomitant]
     Active Substance: CYANOCOBALAMIN\DEXPANTHENOL\NIACINAMIDE\PYRIDOXINE HYDROCHLORIDE\RIBOFLAVIN 5^-PHOSPHATE SODIUM\THIA
     Dosage: UNK
  27. VITAMIN B12 [Concomitant]
     Active Substance: CYANOCOBALAMIN
     Indication: Bladder irritation
     Dosage: UNK
  28. NAPROXEN SODIUM [Concomitant]
     Active Substance: NAPROXEN SODIUM
     Dosage: UNK
  29. PSEUDOEPHEDRINE [Concomitant]
     Active Substance: PSEUDOEPHEDRINE
     Dosage: UNK
  30. PHENAZOPYRIDINE [Concomitant]
     Active Substance: PHENAZOPYRIDINE
     Dosage: UNK

REACTIONS (6)
  - Drug dependence [Unknown]
  - Off label use [Unknown]
  - Drug effective for unapproved indication [Unknown]
  - Product dose omission issue [Unknown]
  - Product dispensing error [Unknown]
  - Restlessness [Unknown]
